FAERS Safety Report 12810593 (Version 8)
Quarter: 2017Q1

REPORT INFORMATION
  Report Type: Report from Study
  Country: US (occurrence: US)
  Receive Date: 20161005
  Receipt Date: 20170322
  Transmission Date: 20170428
  Serious: Yes (Disabling, Other)
  Sender: FDA-Public Use
  Company Number: PHEH2016US025441

PATIENT
  Age: 56 Year
  Sex: Female

DRUGS (6)
  1. COSENTYX [Suspect]
     Active Substance: SECUKINUMAB
     Dosage: 300 MG, QMO
     Route: 058
     Dates: start: 20161123
  2. PREDNISONE. [Concomitant]
     Active Substance: PREDNISONE
     Indication: PRODUCT USED FOR UNKNOWN INDICATION
     Route: 065
  3. LEVAQUIN [Concomitant]
     Active Substance: LEVOFLOXACIN
     Indication: PRODUCT USED FOR UNKNOWN INDICATION
     Route: 065
  4. OMEGA-3 FATTY ACIDS [Concomitant]
     Active Substance: OMEGA-3 FATTY ACIDS
     Indication: PRODUCT USED FOR UNKNOWN INDICATION
     Route: 065
  5. NAPROXEN. [Concomitant]
     Active Substance: NAPROXEN
     Indication: PRODUCT USED FOR UNKNOWN INDICATION
     Route: 065
  6. COSENTYX [Suspect]
     Active Substance: SECUKINUMAB
     Indication: PSORIATIC ARTHROPATHY
     Dosage: 300 MG, QMO
     Route: 058
     Dates: start: 201607

REACTIONS (16)
  - Arthritis [Unknown]
  - Viral infection [Recovered/Resolved]
  - Nasopharyngitis [Unknown]
  - Colitis [Unknown]
  - Pruritus [Unknown]
  - Inappropriate schedule of drug administration [Unknown]
  - Musculoskeletal discomfort [Unknown]
  - Diarrhoea [Unknown]
  - Incorrect dose administered [Unknown]
  - Swelling [Unknown]
  - Syringe issue [Unknown]
  - Malaise [Unknown]
  - Colitis [Recovered/Resolved]
  - Drug effect incomplete [Unknown]
  - Urinary tract infection [Recovered/Resolved]
  - Joint stiffness [Unknown]

NARRATIVE: CASE EVENT DATE: 201610
